FAERS Safety Report 5530661-5 (Version None)
Quarter: 2007Q4

REPORT INFORMATION
  Report Type: 
  Country: None (occurrence: None)
  Receive Date: 20071128
  Receipt Date: 20071128
  Transmission Date: 20080405
  Serious: Yes (Hospitalization)
  Sender: FDA-Public Use
  Company Number: None

PATIENT
  Age: 74 Year
  Sex: Male

DRUGS (8)
  1. WARFARIN SODIUM [Suspect]
     Indication: DEEP VEIN THROMBOSIS
     Dosage: 5/5/7.5 MG PO Q 3D
     Route: 048
  2. COLACE [Concomitant]
  3. IRON [Concomitant]
  4. LIPITOR [Concomitant]
  5. LYRICA [Concomitant]
  6. MGO [Concomitant]
  7. PROTONIX [Concomitant]
  8. TOPROL-XL [Concomitant]

REACTIONS (2)
  - INTERNATIONAL NORMALISED RATIO INCREASED [None]
  - PELVIC HAEMORRHAGE [None]
